FAERS Safety Report 9302853 (Version 3)
Quarter: 2013Q2

REPORT INFORMATION
  Report Type: Spontaneous
  Country: AU (occurrence: AU)
  Receive Date: 20130522
  Receipt Date: 20130627
  Transmission Date: 20140414
  Serious: Yes (Hospitalization, Other)
  Sender: FDA-Public Use
  Company Number: AU-AMGEN-AUSSP2013029943

PATIENT
  Age: 60 Year
  Sex: Female

DRUGS (13)
  1. XGEVA [Suspect]
     Indication: BREAST CANCER METASTATIC
     Dosage: 120 UNK, 4/52
     Route: 058
     Dates: start: 20130319, end: 20130409
  2. CALCIUM GLUCONATE [Concomitant]
     Dosage: 2.2 MOL, QD
  3. DOCUSATE SODIUM\SENNOSIDES [Concomitant]
  4. GLICLAZIDE [Concomitant]
  5. MOVICOL                            /01625101/ [Concomitant]
  6. MAXOLON [Concomitant]
  7. ONDANSETRON [Concomitant]
  8. OXYCONTIN [Concomitant]
  9. PANTOPRAZOLE [Concomitant]
  10. PANADOL                            /00020001/ [Concomitant]
  11. COVERSYL PLUS                      /01421201/ [Concomitant]
  12. ROSUVASTATIN [Concomitant]
  13. LACTULOSE [Concomitant]

REACTIONS (4)
  - Musculoskeletal chest pain [Unknown]
  - Pyrexia [Recovered/Resolved]
  - Electrocardiogram QT prolonged [Unknown]
  - Hypocalcaemia [Recovered/Resolved]
